FAERS Safety Report 24548829 (Version 1)
Quarter: 2024Q4

REPORT INFORMATION
  Report Type: Report from Study
  Country: US (occurrence: US)
  Receive Date: 20241025
  Receipt Date: 20241025
  Transmission Date: 20250114
  Serious: Yes (Other)
  Sender: ALEXION PHARMACEUTICALS
  Company Number: US-AstraZeneca-CH-00729049A

PATIENT

DRUGS (1)
  1. OLAPARIB [Suspect]
     Active Substance: OLAPARIB
     Dosage: 200 MILLIGRAM, BID

REACTIONS (6)
  - Amnesia [Unknown]
  - Hepatic enzyme abnormal [Unknown]
  - Dizziness [Unknown]
  - Feelings of worthlessness [Unknown]
  - Cardiac disorder [Unknown]
  - Neoplasm malignant [Unknown]
